FAERS Safety Report 11140805 (Version 1)
Quarter: 2015Q2

REPORT INFORMATION
  Report Type: Spontaneous
  Country: US (occurrence: US)
  Receive Date: 20150527
  Receipt Date: 20150527
  Transmission Date: 20150821
  Serious: No
  Sender: FDA-Public Use
  Company Number: US-ELI_LILLY_AND_COMPANY-US201505000379

PATIENT
  Age: 73 Year
  Sex: Female

DRUGS (5)
  1. SULINDAC. [Concomitant]
     Active Substance: SULINDAC
  2. DULOXETINE HYDROCHLORIDE. [Suspect]
     Active Substance: DULOXETINE HYDROCHLORIDE
     Indication: DEPRESSION
     Dosage: 60 MG, UNK
     Route: 065
     Dates: start: 20150301
  3. ISOSORBIDE [Concomitant]
     Active Substance: ISOSORBIDE
  4. LISINOPRIL. [Concomitant]
     Active Substance: LISINOPRIL
  5. LIPITOR [Concomitant]
     Active Substance: ATORVASTATIN CALCIUM

REACTIONS (8)
  - Anxiety [Unknown]
  - Weight decreased [Unknown]
  - Muscle twitching [Unknown]
  - Vomiting [Unknown]
  - Gastrointestinal sounds abnormal [Unknown]
  - Drug ineffective [Unknown]
  - Diarrhoea [Not Recovered/Not Resolved]
  - Decreased appetite [Unknown]
